FAERS Safety Report 5939491-3 (Version None)
Quarter: 2008Q4

REPORT INFORMATION
  Report Type: 
  Country: None (occurrence: None)
  Receive Date: 20081029
  Receipt Date: 20081017
  Transmission Date: 20090506
  Serious: Yes (Hospitalization)
  Sender: FDA-Public Use
  Company Number: GXKR2008TW09938

PATIENT
  Age: 13 Year
  Sex: Male
  Weight: 67 kg

DRUGS (2)
  1. BETAMETHASONE [Suspect]
     Indication: DERMATITIS ATOPIC
     Dosage: 6 MG, QD, INTRAVENOUS; 4MG, QD
     Route: 042
  2. HYDROCORTISONE [Suspect]
     Indication: DERMATITIS ATOPIC
     Dosage: 200 MG, QD, INTRAVENOUS
     Route: 042

REACTIONS (3)
  - LABORATORY TEST ABNORMAL [None]
  - LEUKOCYTOSIS [None]
  - NEUTROPHILIA [None]
